FAERS Safety Report 5078619-7 (Version None)
Quarter: 2006Q3

REPORT INFORMATION
  Report Type: 
  Country: None (occurrence: None)
  Receive Date: 20060808
  Receipt Date: 20060724
  Transmission Date: 20061208
  Serious: Yes (Death)
  Sender: FDA-Public Use
  Company Number: VE200607001149

PATIENT
  Age: 61 Year
  Sex: Female

DRUGS (5)
  1. ZYPREXA [Suspect]
     Indication: PSYCHOTIC DISORDER
  2. CYMBALTA [Suspect]
     Dosage: 60 MG, DAILY (1/D), ORAL
     Route: 048
     Dates: start: 20051201
  3. EFFEXOR [Concomitant]
  4. LAXATIVES [Concomitant]
  5. REMERON [Concomitant]

REACTIONS (5)
  - ANXIETY [None]
  - ASPIRATION BRONCHIAL [None]
  - COMPLETED SUICIDE [None]
  - HYPOTENSION [None]
  - OVERDOSE [None]
